FAERS Safety Report 4801456-2 (Version None)
Quarter: 2005Q4

REPORT INFORMATION
  Report Type: 
  Country: None (occurrence: None)
  Receive Date: 20051011
  Receipt Date: 20050927
  Transmission Date: 20060501
  Serious: Yes (Hospitalization)
  Sender: FDA-Public Use
  Company Number: 217901

PATIENT
  Age: 57 Year
  Sex: Female
  Weight: 64.4 kg

DRUGS (1)
  1. AVASTIN [Suspect]
     Indication: UTERINE CANCER
     Dosage: 15 MG/KG, Q3W
     Dates: start: 20050816

REACTIONS (4)
  - CANCER PAIN [None]
  - CHEST PAIN [None]
  - HEADACHE [None]
  - SINUS CONGESTION [None]
